FAERS Safety Report 6837817-X (Version None)
Quarter: 2010Q3

REPORT INFORMATION
  Report Type: 
  Country: None (occurrence: None)
  Receive Date: 20100713
  Receipt Date: 20070521
  Transmission Date: 20110219
  Serious: No
  Sender: FDA-Public Use
  Company Number: US-PFIZER INC-2007042208

PATIENT
  Sex: Female
  Weight: 71.8 kg

DRUGS (6)
  1. CHANTIX [Suspect]
     Indication: SMOKING CESSATION THERAPY
     Route: 048
     Dates: start: 20070514, end: 20070518
  2. DARVOCET [Concomitant]
  3. ALLEGRA D 24 HOUR [Concomitant]
     Indication: HYPERSENSITIVITY
  4. PAXIL [Concomitant]
  5. EFFEXOR [Concomitant]
  6. WELLBUTRIN [Concomitant]

REACTIONS (5)
  - DYSKINESIA [None]
  - EYE PAIN [None]
  - EYELID PAIN [None]
  - HEADACHE [None]
  - PAIN [None]
